FAERS Safety Report 5648844-2 (Version None)
Quarter: 2008Q1

REPORT INFORMATION
  Report Type: 
  Country: None (occurrence: None)
  Receive Date: 20080304
  Receipt Date: 20080229
  Transmission Date: 20080703
  Serious: Yes (Hospitalization)
  Sender: FDA-Public Use
  Company Number: US-ASTRAZENECA-2008UW04187

PATIENT

DRUGS (5)
  1. CRESTOR [Suspect]
     Route: 048
  2. COREG [Concomitant]
  3. ASPIRIN [Concomitant]
  4. ENALAPRIL MALEATE [Concomitant]
  5. SPIRONOLACTONE [Concomitant]

REACTIONS (3)
  - HYPOVOLAEMIA [None]
  - RHABDOMYOLYSIS [None]
  - VIRAL INFECTION [None]
